FAERS Safety Report 18235659 (Version 1)
Quarter: 2020Q3

REPORT INFORMATION
  Report Type: Spontaneous
  Country: FR (occurrence: FR)
  Receive Date: 20200905
  Receipt Date: 20200905
  Transmission Date: 20201103
  Serious: Yes (Death, Hospitalization, Other)
  Sender: FDA-Public Use
  Company Number: FR-MICRO LABS LIMITED-ML2020-02570

PATIENT
  Age: 74 Year
  Sex: Male

DRUGS (2)
  1. CLOMIPRAMINE [Suspect]
     Active Substance: CLOMIPRAMINE
     Indication: OBSESSIVE-COMPULSIVE DISORDER
  2. OLANZAPINE. [Suspect]
     Active Substance: OLANZAPINE
     Indication: OBSESSIVE-COMPULSIVE DISORDER

REACTIONS (9)
  - Neuroleptic malignant syndrome [Recovering/Resolving]
  - Confusional state [Recovering/Resolving]
  - Hallucination, visual [Not Recovered/Not Resolved]
  - Dyspraxia [Recovering/Resolving]
  - Orthostatic hypotension [Unknown]
  - Sleep disorder [Unknown]
  - Dysphagia [Unknown]
  - Extrapyramidal disorder [Recovering/Resolving]
  - Dysuria [Unknown]
